FAERS Safety Report 17841375 (Version 1)
Quarter: 2020Q2

REPORT INFORMATION
  Report Type: Report from Study
  Country: None (occurrence: AU)
  Receive Date: 20200529
  Receipt Date: 20200529
  Transmission Date: 20200714
  Serious: Yes (Hospitalization)
  Sender: FDA-Public Use
  Company Number: AU-ABBVIE-18P-008-2279624-00

PATIENT
  Age: 72 Year
  Sex: Female

DRUGS (32)
  1. BORTEZOMIB. [Suspect]
     Active Substance: BORTEZOMIB
     Dosage: 1, 4, 8 AND 11 OF EACH 21 DAY CYCLE.
     Route: 058
     Dates: start: 20171026, end: 20171204
  2. DEXAMETHASONE. [Suspect]
     Active Substance: DEXAMETHASONE
     Dosage: ON DAYS 1,2,7,8,15,16,21,22 OF A 22 DAY CYCLE.
     Route: 048
     Dates: start: 20170710
  3. VALTREX [Concomitant]
     Active Substance: VALACYCLOVIR HYDROCHLORIDE
     Indication: ANTIVIRAL PROPHYLAXIS
     Route: 048
     Dates: start: 20170518
  4. ZOMETA [Concomitant]
     Active Substance: ZOLEDRONIC ACID
     Indication: PROPHYLAXIS
     Route: 042
     Dates: start: 20170601
  5. TEMAZEPAM. [Concomitant]
     Active Substance: TEMAZEPAM
     Indication: INSOMNIA
     Route: 048
     Dates: start: 20170622
  6. LENALIDOMIDE [Concomitant]
     Active Substance: LENALIDOMIDE
     Indication: PLASMA CELL MYELOMA
     Dosage: POST STUDY TREATMENT MULTIPLE MYELOMA THERAPY
     Route: 048
     Dates: start: 20181128, end: 20190729
  7. ELOTUZUMAB. [Concomitant]
     Active Substance: ELOTUZUMAB
     Indication: PLASMA CELL MYELOMA
     Dosage: POST STUDY TREATMENT MULTIPLE MYELOMA THERAPY
     Route: 042
     Dates: start: 20200108
  8. DEXAMETHASONE. [Concomitant]
     Active Substance: DEXAMETHASONE
     Indication: PLASMA CELL MYELOMA
     Dosage: POST STUDY TREATMENT MULTIPLE MYELOMA THERAPY
     Route: 048
     Dates: start: 20200108
  9. RANITIDINE. [Concomitant]
     Active Substance: RANITIDINE
     Indication: GASTROOESOPHAGEAL REFLUX PROPHYLAXIS
     Route: 048
     Dates: start: 20170605
  10. MAXOLON [Concomitant]
     Active Substance: METOCLOPRAMIDE HYDROCHLORIDE
     Indication: PROPHYLAXIS OF NAUSEA AND VOMITING
     Route: 048
     Dates: start: 20171215
  11. DT PACE [Concomitant]
     Indication: PLASMA CELL MYELOMA
     Dosage: POST STUDY TREATMENT MULTIPLE MYELOMA THERAPY
     Route: 042
     Dates: start: 20191013, end: 20191013
  12. BORTEZOMIB. [Suspect]
     Active Substance: BORTEZOMIB
     Dosage: DAYS 1, 8, 15 AND 22 OF EACH 35 DAY CYCLE.
     Route: 058
     Dates: start: 20171227
  13. INTRANASAL SALINE [Concomitant]
     Indication: SINUSITIS
     Route: 045
     Dates: start: 20170710
  14. PANADOL [Concomitant]
     Active Substance: ACETAMINOPHEN
     Indication: MUSCULOSKELETAL PAIN
     Route: 048
     Dates: start: 20170910
  15. IMODIUM [Concomitant]
     Active Substance: LOPERAMIDE HYDROCHLORIDE
     Indication: DIARRHOEA
     Route: 048
     Dates: start: 201707
  16. CARFILOZOMIB [Concomitant]
     Indication: PLASMA CELL MYELOMA
     Dosage: POST STUDY TREATMENT MULTIPLE MYELOMA THERAPY
     Route: 042
     Dates: start: 20190805, end: 20190923
  17. VENETOCLAX. [Suspect]
     Active Substance: VENETOCLAX
     Indication: PLASMA CELL MYELOMA
     Dosage: DAYS 1-21 OF 21-DAY CYCLE, CYCLES 1-8
     Route: 048
     Dates: start: 20170529, end: 20171127
  18. COLOXYL [Concomitant]
     Indication: CONSTIPATION
     Route: 048
     Dates: start: 20170605
  19. FLUDROCORTISONE [Concomitant]
     Active Substance: FLUDROCORTISONE
     Indication: ORTHOSTATIC HYPOTENSION
     Route: 048
     Dates: start: 20171003
  20. BION TEARS [Concomitant]
     Active Substance: DEXTRAN 70\HYPROMELLOSE 2910 (4000 MPA.S)
     Indication: GLAUCOMA
     Route: 031
     Dates: start: 20171212
  21. CYCLOPHOSPHAMIDE. [Concomitant]
     Active Substance: CYCLOPHOSPHAMIDE
     Indication: PLASMA CELL MYELOMA
     Dosage: POST STUDY TREATMENT MULTIPLE MYELOMA THERAPY
     Route: 048
     Dates: start: 20200108
  22. BORTEZOMIB. [Suspect]
     Active Substance: BORTEZOMIB
     Dosage: 1, 4, 8 AND 11 OF EACH 21 DAY CYCLE.
     Route: 058
     Dates: start: 20170710, end: 20170828
  23. VENETOCLAX. [Suspect]
     Active Substance: VENETOCLAX
     Dosage: DAYS 1-21 OF 21-DAY CYCLE, CYCLES 1-8
     Route: 048
     Dates: start: 20171224
  24. BORTEZOMIB. [Suspect]
     Active Substance: BORTEZOMIB
     Indication: PLASMA CELL MYELOMA
     Dosage: 1, 4, 8 AND 11 OF EACH 21 DAY CYCLE.
     Route: 058
     Dates: start: 20170529, end: 20170629
  25. DEXAMETHASONE. [Suspect]
     Active Substance: DEXAMETHASONE
     Indication: PLASMA CELL MYELOMA
     Dosage: ON DAYS 1,2,7,8,15,16,21,22 OF A 22 DAY CYCLE.
     Route: 048
     Dates: start: 20170529, end: 20170630
  26. ALLOPURINOL. [Concomitant]
     Active Substance: ALLOPURINOL
     Indication: PROPHYLAXIS
     Route: 048
     Dates: start: 20170515
  27. RESPRIM [Concomitant]
     Active Substance: SULFAMETHOXAZOLE\TRIMETHOPRIM
     Indication: INFECTION PROPHYLAXIS
     Route: 048
     Dates: start: 20170518
  28. MOVICOL [Concomitant]
     Active Substance: POLYETHYLENE GLYCOL 3350\POTASSIUM CHLORIDE\SODIUM BICARBONATE\SODIUM CHLORIDE
     Indication: CONSTIPATION
     Route: 048
     Dates: start: 20170605
  29. LUMIGAN [Concomitant]
     Active Substance: BIMATOPROST
     Indication: GLAUCOMA
     Route: 031
     Dates: start: 20171212
  30. ESOMEPRAZOLE. [Concomitant]
     Active Substance: ESOMEPRAZOLE MAGNESIUM
     Indication: GASTROOESOPHAGEAL REFLUX PROPHYLAXIS
     Route: 048
     Dates: start: 20171215
  31. THALIDOMIDE [Concomitant]
     Active Substance: THALIDOMIDE
     Indication: PLASMA CELL MYELOMA
     Dosage: POST STUDY TREATMENT MULTIPLE MYELOMA THERAPY
     Route: 048
     Dates: start: 20200108
  32. BORTEZOMIB. [Suspect]
     Active Substance: BORTEZOMIB
     Dosage: 1, 4, 8 AND 11 OF EACH 21 DAY CYCLE.
     Route: 058
     Dates: start: 20170831, end: 20171023

REACTIONS (1)
  - Pneumonia influenzal [Recovered/Resolved]

NARRATIVE: CASE EVENT DATE: 20180222
